FAERS Safety Report 11426038 (Version 1)
Quarter: 2015Q3

REPORT INFORMATION
  Report Type: Spontaneous
  Country: US (occurrence: US)
  Receive Date: 20150821
  Receipt Date: 20150821
  Transmission Date: 20151125
  Serious: No
  Sender: FDA-Public Use
  Company Number: US-ELI_LILLY_AND_COMPANY-US201012001373

PATIENT
  Age: 66 Year
  Sex: Male

DRUGS (2)
  1. HUMULIN N [Suspect]
     Active Substance: INSULIN HUMAN
     Indication: TYPE 2 DIABETES MELLITUS
     Dosage: 12 U, EACH MORNING
     Dates: start: 2008
  2. HUMULIN N [Suspect]
     Active Substance: INSULIN HUMAN
     Dosage: 6 U, EACH EVENING
     Dates: start: 2008

REACTIONS (1)
  - Poor quality drug administered [Unknown]

NARRATIVE: CASE EVENT DATE: 201010
